FAERS Safety Report 6840084-4 (Version None)
Quarter: 2010Q3

REPORT INFORMATION
  Report Type: 
  Country: None (occurrence: None)
  Receive Date: 20100713
  Receipt Date: 20100713
  Transmission Date: 20110219
  Serious: No
  Sender: FDA-Public Use
  Company Number: None

PATIENT
  Sex: Female
  Weight: 68.0396 kg

DRUGS (1)
  1. ZICAM NASAL SPRAY [Suspect]
     Indication: NASOPHARYNGITIS
     Dosage: 2 SQUIRTS IN NOSTRIL TWICE IN ALL NASAL
     Route: 045
     Dates: start: 20100611, end: 20100611

REACTIONS (7)
  - AGEUSIA [None]
  - ANOSMIA [None]
  - DIZZINESS [None]
  - DYSGEUSIA [None]
  - LACRIMATION INCREASED [None]
  - NASAL DISCOMFORT [None]
  - PANIC REACTION [None]
